FAERS Safety Report 24197156 (Version 1)
Quarter: 2024Q3

REPORT INFORMATION
  Report Type: Spontaneous
  Country: GB (occurrence: GB)
  Receive Date: 20240810
  Receipt Date: 20240810
  Transmission Date: 20241017
  Serious: Yes (Other)
  Sender: TEVA
  Company Number: GB-MHRA-TPP19478662C21992317YC1722418691609

PATIENT
  Age: 75 Year
  Sex: Female
  Weight: 67 kg

DRUGS (8)
  1. AMLODIPINE [Suspect]
     Active Substance: AMLODIPINE BESYLATE
     Indication: Hypertension
     Route: 065
     Dates: start: 20240515
  2. LEVOTHYROXINE [Concomitant]
     Active Substance: LEVOTHYROXINE\LEVOTHYROXINE SODIUM
     Dosage: EACH MORNING
     Dates: start: 20240426
  3. VAGIFEM [Concomitant]
     Active Substance: ESTRADIOL
     Dosage: USE TWICE WEEKLY OR EVEN ALTERNATE DAYS
     Dates: start: 20240426
  4. HYALURONATE SODIUM\TREHALOSE [Concomitant]
     Active Substance: HYALURONATE SODIUM\TREHALOSE
     Dosage: ONE DROP IN EACH EYE
     Route: 047
     Dates: start: 20240426
  5. FLUTICASONE FUROATE [Concomitant]
     Active Substance: FLUTICASONE FUROATE
     Dosage: USE 1-2 SPRAYS PER NOSTRIL ONCE DAILY
     Route: 045
     Dates: start: 20240426
  6. ATORVASTATIN [Concomitant]
     Active Substance: ATORVASTATIN
     Dates: start: 20240426
  7. RAMIPRIL [Concomitant]
     Active Substance: RAMIPRIL
  8. HYLO NIGHT [Concomitant]
     Dosage: TO BOTH EYES AT NIGHT
     Route: 047
     Dates: start: 20240426

REACTIONS (2)
  - Joint swelling [Recovering/Resolving]
  - Peripheral swelling [Unknown]
